FAERS Safety Report 24808833 (Version 1)
Quarter: 2025Q1

REPORT INFORMATION
  Report Type: Report from Study
  Country: JP (occurrence: JP)
  Receive Date: 20250106
  Receipt Date: 20250106
  Transmission Date: 20250409
  Serious: Yes (Other)
  Sender: RECORDATI
  Company Number: JP-RECORDATI RARE DISEASE INC.-2024010315

PATIENT

DRUGS (1)
  1. NEOPROFEN [Suspect]
     Active Substance: IBUPROFEN LYSINE
     Indication: Patent ductus arteriosus
     Route: 042
     Dates: start: 20220710, end: 20220710

REACTIONS (2)
  - Pancytopenia [Recovered/Resolved]
  - Renal disorder [Recovering/Resolving]

NARRATIVE: CASE EVENT DATE: 20220710
